FAERS Safety Report 9309576 (Version 1)
Quarter: 2013Q2

REPORT INFORMATION
  Report Type: Spontaneous
  Country: US (occurrence: US)
  Receive Date: 20130525
  Receipt Date: 20130525
  Transmission Date: 20140414
  Serious: No
  Sender: FDA-Public Use
  Company Number: US-BRISTOL-MYERS SQUIBB COMPANY-18728386

PATIENT
  Age: 62 Year
  Sex: Male

DRUGS (6)
  1. BYDUREON [Suspect]
     Indication: DIABETES MELLITUS
     Route: 058
     Dates: start: 20130304
  2. FISH OIL [Concomitant]
  3. METFORMIN [Concomitant]
  4. AMARYL [Concomitant]
  5. COZAAR [Concomitant]
  6. MULTIVITAMIN [Concomitant]

REACTIONS (2)
  - Blood glucose increased [Recovering/Resolving]
  - Headache [Recovering/Resolving]
